FAERS Safety Report 19850401 (Version 3)
Quarter: 2021Q3

REPORT INFORMATION
  Report Type: Spontaneous
  Country: US (occurrence: US)
  Receive Date: 20210917
  Receipt Date: 20210917
  Transmission Date: 20211014
  Serious: No
  Sender: FDA-Public Use
  Company Number: US-VIELABIO-VIE-2021-US-000082

PATIENT
  Age: 26 Year
  Sex: Female

DRUGS (2)
  1. UPLIZNA [Suspect]
     Active Substance: INEBILIZUMAB-CDON
     Dosage: 100 MILLIGRAM PER 10 MILLILITRE, FIRST 2 DOSES 14 DAYS APART AND THEN Q 6 MONTHS
     Dates: start: 20210626
  2. UPLIZNA [Suspect]
     Active Substance: INEBILIZUMAB-CDON
     Indication: NEUROMYELITIS OPTICA SPECTRUM DISORDER
     Dosage: 100 MILLIGRAM PER 10 MILLILITRE
     Dates: start: 20210624, end: 20210624

REACTIONS (2)
  - Throat irritation [Unknown]
  - Throat irritation [Unknown]

NARRATIVE: CASE EVENT DATE: 20210624
